FAERS Safety Report 25725784 (Version 1)
Quarter: 2025Q3

REPORT INFORMATION
  Report Type: Spontaneous
  Country: EU (occurrence: EU)
  Receive Date: 20250826
  Receipt Date: 20250826
  Transmission Date: 20251021
  Serious: Yes (Other)
  Sender: TEVA
  Company Number: None

PATIENT
  Age: 68 Year
  Sex: Female
  Weight: 89 kg

DRUGS (1)
  1. METHOTREXATE [Suspect]
     Active Substance: METHOTREXATE
     Indication: Rheumatoid arthritis
     Dosage: DOSE: 2.5 TABLETS
     Route: 048
     Dates: start: 202004, end: 202011

REACTIONS (3)
  - Diffuse alopecia [Unknown]
  - Nausea [Unknown]
  - Abdominal pain [Unknown]
